FAERS Safety Report 5294896-1 (Version None)
Quarter: 2007Q2

REPORT INFORMATION
  Report Type: 
  Country: None (occurrence: None)
  Receive Date: 20070412
  Receipt Date: 20070403
  Transmission Date: 20071010
  Serious: Yes (Other)
  Sender: FDA-Public Use
  Company Number: HQWYE174119FEB04

PATIENT
  Sex: Female

DRUGS (9)
  1. RAPAMUNE [Suspect]
     Indication: PROPHYLAXIS AGAINST TRANSPLANT REJECTION
     Route: 048
  2. SYNTHROID [Concomitant]
     Dosage: UNSPECIFIED
     Route: 065
  3. PROTONIX [Suspect]
     Dosage: UNSPECIFIED
     Route: 065
  4. CYANOCOBALAMIN [Concomitant]
     Dosage: UNSPECIFIED
     Route: 065
  5. VITAMINS, OTHER COMBINATIONS [Concomitant]
     Dosage: UNSPECIFIED
     Route: 065
  6. FOLIC ACID [Concomitant]
     Dosage: UNSPECIFIED
     Route: 065
  7. PYRIDOXINE HYDROCHLORIDE [Concomitant]
     Dosage: UNSPECIFIED
     Route: 065
  8. PROGRAF [Concomitant]
     Indication: PROPHYLAXIS AGAINST TRANSPLANT REJECTION
     Route: 065
  9. BACTRIM [Concomitant]
     Dosage: UNSPECIFIED
     Route: 065

REACTIONS (2)
  - ABORTION SPONTANEOUS [None]
  - DRUG EXPOSURE DURING PREGNANCY [None]
